FAERS Safety Report 8997674 (Version 1)
Quarter: 2013Q1

REPORT INFORMATION
  Report Type: Report from Study
  Country: GB (occurrence: GB)
  Receive Date: 20130104
  Receipt Date: 20130104
  Transmission Date: 20140127
  Serious: Yes (Hospitalization)
  Sender: FDA-Public Use
  Company Number: GB-BAXTER-2012BAX029456

PATIENT
  Age: 66 Year
  Sex: Female
  Weight: 64.6 kg

DRUGS (23)
  1. CYCLOPHOSPHAMIDE INJECTION 1G [Suspect]
     Indication: B-CELL LYMPHOMA
     Route: 042
     Dates: start: 20120816
  2. CYCLOPHOSPHAMIDE INJECTION 1G [Suspect]
     Route: 042
     Dates: start: 20120924
  3. CYCLOPHOSPHAMIDE INJECTION 1G [Suspect]
     Route: 042
  4. PREDNISONE [Suspect]
     Indication: PRODUCT USED FOR UNKNOWN INDICATION
     Route: 048
     Dates: start: 20120816
  5. PREDNISONE [Suspect]
     Route: 048
     Dates: start: 20120924
  6. PREDNISONE [Suspect]
     Route: 048
  7. RITUXIMAB [Suspect]
     Indication: B-CELL LYMPHOMA
     Route: 042
     Dates: start: 20120815
  8. RITUXIMAB [Suspect]
     Route: 042
     Dates: start: 20120924
  9. VINCRISTINE SULFATE [Suspect]
     Indication: B-CELL LYMPHOMA
     Route: 040
     Dates: start: 20120816
  10. VINCRISTINE SULFATE [Suspect]
     Route: 040
     Dates: start: 20120924
  11. VINCRISTINE SULFATE [Suspect]
     Route: 040
  12. ACYCLOVIR [Concomitant]
     Indication: MOUTH ULCERATION
     Route: 065
     Dates: start: 20120921
  13. ALLOPURINOL [Concomitant]
     Indication: TUMOUR LYSIS SYNDROME
     Route: 065
     Dates: start: 20111010, end: 20111215
  14. CHLORPHENIRAMINE MALEATE [Concomitant]
     Indication: PRODUCT USED FOR UNKNOWN INDICATION
     Route: 065
  15. DOXYCYCLINE [Concomitant]
     Indication: PNEUMONIA
     Route: 065
     Dates: start: 20121012, end: 20121019
  16. HYDROCORTISONE [Concomitant]
     Indication: PRODUCT USED FOR UNKNOWN INDICATION
     Route: 065
     Dates: start: 20111101, end: 20121101
  17. METOCLOPRAMIDE [Concomitant]
     Indication: VOMITING
     Route: 065
     Dates: start: 20111101, end: 20111101
  18. METOCLOPRAMIDE [Concomitant]
     Indication: NAUSEA
  19. OMEPRAZOLE [Concomitant]
     Indication: DYSPEPSIA
     Route: 065
     Dates: start: 20111010, end: 20120308
  20. ONDANSETRON [Concomitant]
     Indication: NAUSEA
     Route: 065
     Dates: start: 20111011
  21. PARACETAMOL [Concomitant]
     Indication: PRODUCT USED FOR UNKNOWN INDICATION
     Route: 065
     Dates: start: 20111010
  22. SENNA [Concomitant]
     Indication: CONSTIPATION
     Route: 065
     Dates: start: 20111010, end: 20120308
  23. VORICONAZOLE [Concomitant]
     Indication: FUNGAL INFECTION
     Route: 065
     Dates: start: 20121012, end: 20121019

REACTIONS (4)
  - Infusion related reaction [Recovered/Resolved]
  - Neutropenic sepsis [Recovered/Resolved]
  - Pleural effusion [Recovered/Resolved]
  - Pneumonia [Recovered/Resolved]
